FAERS Safety Report 4361290-7 (Version None)
Quarter: 2004Q2

REPORT INFORMATION
  Report Type: 
  Country: None (occurrence: None)
  Receive Date: 20040520
  Receipt Date: 20031204
  Transmission Date: 20050107
  Serious: Yes (Hospitalization, Other)
  Sender: FDA-Public Use
  Company Number: PHEH2003US11069

PATIENT
  Age: 77 Year
  Sex: Female

DRUGS (11)
  1. ZOMETA [Suspect]
     Indication: MULTIPLE MYELOMA
     Dosage: 4 MG EVERY MONTH
     Route: 042
     Dates: start: 20010101
  2. KYTRIL [Concomitant]
  3. CONJUGATED ESTROGEN [Concomitant]
  4. COZAAR [Concomitant]
  5. PROZAC [Concomitant]
  6. ESOMEPRAZOLE [Concomitant]
  7. VIOXX [Concomitant]
  8. DIAZEPAM [Concomitant]
  9. ALKERAN [Concomitant]
  10. ALLOPURINOL [Concomitant]
  11. PREDNISONE [Concomitant]

REACTIONS (12)
  - ABSCESS DRAINAGE [None]
  - ABSCESS JAW [None]
  - ASEPTIC NECROSIS BONE [None]
  - BONE DEBRIDEMENT [None]
  - BONE DISORDER [None]
  - INJURY [None]
  - OSTEOMYELITIS [None]
  - OSTEONECROSIS [None]
  - PAIN [None]
  - SEQUESTRECTOMY [None]
  - SWELLING [None]
  - TOOTH EXTRACTION [None]
